FAERS Safety Report 9841902 (Version 1)
Quarter: 2013Q4

REPORT INFORMATION
  Report Type: Spontaneous
  Country: FR (occurrence: None)
  Receive Date: 20131211
  Receipt Date: 20131211
  Transmission Date: 20140711
  Serious: Yes (Life-Threatening, Hospitalization)
  Sender: FDA-Public Use
  Company Number: TKT01200700001

PATIENT
  Age: 13 Year
  Sex: Male
  Weight: 31 kg

DRUGS (4)
  1. IDURSULFASE [Suspect]
     Indication: MUCOPOLYSACCHARIDOSIS II
     Route: 041
     Dates: start: 20061205
  2. NOZINAN (LEVOMEPROMAZINE) [Concomitant]
  3. DIAMOX (ACETAZOLAMIDE) [Concomitant]
  4. AUGMENTION (AMOXICILLIN W/CLAVULANATE POTASSIUM) [Concomitant]

REACTIONS (4)
  - Angioedema [None]
  - Face oedema [None]
  - Laryngeal dyspnoea [None]
  - Bronchospasm [None]
